FAERS Safety Report 25254256 (Version 4)
Quarter: 2025Q3

REPORT INFORMATION
  Report Type: Report from Study
  Country: CA (occurrence: CA)
  Receive Date: 20250430
  Receipt Date: 20250731
  Transmission Date: 20251020
  Serious: Yes (Hospitalization)
  Sender: JOHNSON AND JOHNSON
  Company Number: CA-JNJFOC-20250411972

PATIENT
  Age: 46 Year
  Sex: Female
  Weight: 103 kg

DRUGS (2)
  1. REMICADE [Suspect]
     Active Substance: INFLIXIMAB
     Indication: Crohn^s disease
     Route: 041
     Dates: start: 20200929, end: 20250210
  2. REMICADE [Suspect]
     Active Substance: INFLIXIMAB
     Indication: Psoriasis
     Route: 041
     Dates: start: 20200929, end: 20250210

REACTIONS (7)
  - Crohn^s disease [Recovered/Resolved]
  - Vein collapse [Recovered/Resolved]
  - Poor venous access [Recovered/Resolved]
  - Bacterial infection [Unknown]
  - Herpes zoster [Recovered/Resolved]
  - Neuralgia [Recovered/Resolved]
  - Blood potassium decreased [Recovered/Resolved]

NARRATIVE: CASE EVENT DATE: 20230901
